FAERS Safety Report 9645302 (Version 1)
Quarter: 2013Q4

REPORT INFORMATION
  Report Type: Spontaneous
  Country: US (occurrence: None)
  Receive Date: 20131023
  Receipt Date: 20131023
  Transmission Date: 20140711
  Serious: Yes (Hospitalization, Disabling, Other)
  Sender: FDA-Public Use
  Company Number: None

PATIENT
  Age: 58 Year
  Sex: Female
  Weight: 71.22 kg

DRUGS (6)
  1. QSYMIA [Suspect]
     Indication: OBESITY
     Dosage: 7.5 - 46 MG 1 CAPSULE 1 DAILY MOUTH
     Route: 048
     Dates: start: 20121119, end: 20121204
  2. IRON PILLS [Concomitant]
  3. FOLIC ACID [Concomitant]
  4. ADVIL [Concomitant]
  5. TYLENOL [Concomitant]
  6. FLEXARIL [Concomitant]

REACTIONS (1)
  - Movement disorder [None]
